FAERS Safety Report 17870709 (Version 1)
Quarter: 2020Q2

REPORT INFORMATION
  Report Type: Spontaneous
  Country: US (occurrence: US)
  Receive Date: 20200605
  Receipt Date: 20200605
  Transmission Date: 20200714
  Serious: Yes (Death)
  Sender: FDA-Public Use
  Company Number: None

PATIENT
  Age: 77 Year
  Sex: Male
  Weight: 236 kg

DRUGS (1)
  1. REMDESIVIR (EUA) (REMDESIVIR (EUA)) [Suspect]
     Active Substance: REMDESIVIR
     Indication: COVID-19
     Route: 042
     Dates: start: 20200512, end: 20200514

REACTIONS (2)
  - Condition aggravated [None]
  - COVID-19 pneumonia [None]

NARRATIVE: CASE EVENT DATE: 20200515
